FAERS Safety Report 4464213-5 (Version None)
Quarter: 2004Q4

REPORT INFORMATION
  Report Type: 
  Country: None (occurrence: None)
  Receive Date: 20041001
  Receipt Date: 20040721
  Transmission Date: 20050328
  Serious: Yes (Hospitalization)
  Sender: FDA-Public Use
  Company Number: FR-GLAXOSMITHKLINE-B0340848A

PATIENT
  Age: 56 Year
  Sex: Male
  Weight: 82 kg

DRUGS (6)
  1. CEFUROXIME SODIUM [Suspect]
     Indication: INGUINAL HERNIA
     Dosage: 1.5G PER DAY
     Route: 042
     Dates: start: 20040705, end: 20040705
  2. NIMBEX [Suspect]
     Indication: INGUINAL HERNIA
     Route: 042
     Dates: start: 20040705, end: 20040705
  3. DIPRIVAN [Suspect]
     Indication: INGUINAL HERNIA
     Route: 042
     Dates: start: 20040705, end: 20040705
  4. SUFENTA [Suspect]
     Indication: INGUINAL HERNIA
     Route: 042
     Dates: start: 20040705, end: 20040705
  5. SEVORANE [Suspect]
     Indication: INGUINAL HERNIA
     Route: 042
     Dates: start: 20040705, end: 20040705
  6. TISSEEL VH KIT [Concomitant]
     Route: 061
     Dates: start: 20040705, end: 20040705

REACTIONS (2)
  - BLOOD PRESSURE DECREASED [None]
  - BRADYCARDIA [None]
